FAERS Safety Report 19508732 (Version 2)
Quarter: 2023Q4

REPORT INFORMATION
  Report Type: Spontaneous
  Country: US (occurrence: None)
  Receive Date: 20210709
  Receipt Date: 20231127
  Transmission Date: 20240109
  Serious: No
  Sender: FDA-Public Use
  Company Number: US-SAPTALIS PHARMACEUTICALS,LLC-000095

PATIENT
  Sex: Female

DRUGS (1)
  1. METFORMIN [Suspect]
     Active Substance: METFORMIN HYDROCHLORIDE
     Indication: Product used for unknown indication
     Dosage: METFORMIN LIQUID

REACTIONS (2)
  - Product use complaint [Unknown]
  - Adverse drug reaction [Unknown]
